FAERS Safety Report 17308024 (Version 2)
Quarter: 2020Q2

REPORT INFORMATION
  Report Type: Report from Study
  Country: US (occurrence: US)
  Receive Date: 20200123
  Receipt Date: 20200411
  Transmission Date: 20200713
  Serious: No
  Sender: FDA-Public Use
  Company Number: NVSC2020US016569

PATIENT
  Sex: Female

DRUGS (1)
  1. COSENTYX [Suspect]
     Active Substance: SECUKINUMAB
     Indication: PSORIASIS
     Dosage: 300 MG, QW(300 MG WEEKLY X2 WEEKS THEN 300MG FOR 4 WEAKS)
     Route: 058

REACTIONS (2)
  - Swelling face [Unknown]
  - Abdominal distension [Unknown]
